FAERS Safety Report 10155273 (Version 1)
Quarter: 2014Q2

REPORT INFORMATION
  Report Type: Spontaneous
  Country: FI (occurrence: FI)
  Receive Date: 20140506
  Receipt Date: 20140506
  Transmission Date: 20141212
  Serious: Yes (Other)
  Sender: FDA-Public Use
  Company Number: FI-B.I. PHARMACEUTICALS,INC./RIDGEFIELD-2014-BI-19869YA

PATIENT
  Age: 66 Year
  Sex: Male

DRUGS (2)
  1. TAMSULOSINA [Suspect]
     Indication: LOWER URINARY TRACT SYMPTOMS
     Route: 065
  2. TAMSULOSINA [Suspect]
     Indication: BENIGN PROSTATIC HYPERPLASIA

REACTIONS (3)
  - Drug intolerance [Unknown]
  - Dizziness [Unknown]
  - Blood pressure decreased [Unknown]
